FAERS Safety Report 5355344-6 (Version None)
Quarter: 2007Q2

REPORT INFORMATION
  Report Type: 
  Country: None (occurrence: None)
  Receive Date: 20070613
  Receipt Date: 20070611
  Transmission Date: 20071010
  Serious: Yes (Other)
  Sender: FDA-Public Use
  Company Number: SEWYE823711JUN07

PATIENT
  Sex: Female

DRUGS (2)
  1. EFFEXOR [Suspect]
     Indication: DEPRESSION
     Dosage: 75 MG
     Route: 048
     Dates: start: 20070527, end: 20070606
  2. EFFEXOR [Suspect]
     Indication: GENERALISED ANXIETY DISORDER

REACTIONS (1)
  - OCULAR HYPERAEMIA [None]
